FAERS Safety Report 9674251 (Version 1)
Quarter: 2013Q4

REPORT INFORMATION
  Report Type: Spontaneous
  Country: PH (occurrence: PH)
  Receive Date: 20131107
  Receipt Date: 20131107
  Transmission Date: 20140711
  Serious: Yes (Death)
  Sender: FDA-Public Use
  Company Number: PH-009507513-1311PHL001824

PATIENT
  Sex: Male

DRUGS (1)
  1. COZAAR [Suspect]
     Route: 048

REACTIONS (1)
  - Disease complication [Fatal]
